FAERS Safety Report 23723869 (Version 1)
Quarter: 2024Q2

REPORT INFORMATION
  Report Type: Spontaneous
  Country: CA (occurrence: CA)
  Receive Date: 20240409
  Receipt Date: 20240409
  Transmission Date: 20240716
  Serious: Yes (Death, Life-Threatening, Hospitalization, Other)
  Sender: FDA-Public Use
  Company Number: CA-SUN PHARMACEUTICAL INDUSTRIES LTD-2024R1-439964

PATIENT
  Age: 6 Decade
  Sex: Male

DRUGS (8)
  1. DEXAMETHASONE [Suspect]
     Active Substance: DEXAMETHASONE
     Indication: Cough
     Dosage: UNK
     Route: 065
  2. DEXAMETHASONE [Suspect]
     Active Substance: DEXAMETHASONE
     Indication: Dyspnoea
  3. BAMLANIVIMAB [Suspect]
     Active Substance: BAMLANIVIMAB
     Indication: Cough
     Dosage: UNK
     Route: 065
  4. BAMLANIVIMAB [Suspect]
     Active Substance: BAMLANIVIMAB
     Indication: Dyspnoea
  5. REMDESIVIR [Suspect]
     Active Substance: REMDESIVIR
     Indication: Cough
     Dosage: UNK
     Route: 065
  6. REMDESIVIR [Suspect]
     Active Substance: REMDESIVIR
     Indication: Dyspnoea
  7. SOTROVIMAB [Suspect]
     Active Substance: SOTROVIMAB
     Indication: Dyspnoea
     Dosage: UNK
     Route: 065
  8. SOTROVIMAB [Suspect]
     Active Substance: SOTROVIMAB
     Indication: Lung consolidation

REACTIONS (3)
  - Condition aggravated [Fatal]
  - Respiratory failure [Fatal]
  - COVID-19 [Fatal]
